FAERS Safety Report 7981493-X (Version None)
Quarter: 2011Q4

REPORT INFORMATION
  Report Type: 
  Country: None (occurrence: None)
  Receive Date: 20111215
  Receipt Date: 20111209
  Transmission Date: 20120403
  Serious: Yes (Hospitalization, Congenital Anomaly, Other)
  Sender: FDA-Public Use
  Company Number: US-PFIZER INC-2011159825

PATIENT
  Sex: Female
  Weight: 3.3 kg

DRUGS (1)
  1. ZOLOFT [Suspect]
     Dosage: 50 MG, UNK
     Route: 064
     Dates: start: 20100312

REACTIONS (20)
  - HEPATOMEGALY [None]
  - CONGENITAL TORTICOLLIS [None]
  - FALLOT'S TETRALOGY [None]
  - HYPOXIA [None]
  - CONGENITAL JAW MALFORMATION [None]
  - ATELECTASIS [None]
  - ATRIAL SEPTAL DEFECT [None]
  - RIGHT VENTRICULAR HYPERTROPHY [None]
  - PNEUMOTHORAX [None]
  - OESOPHAGEAL ACHALASIA [None]
  - SKULL MALFORMATION [None]
  - PULMONARY VASCULAR DISORDER [None]
  - DYSMORPHISM [None]
  - THYMUS HYPOPLASIA [None]
  - CARDIOMEGALY [None]
  - MATERNAL EXPOSURE TIMING UNSPECIFIED [None]
  - TRANSPOSITION OF THE GREAT VESSELS [None]
  - PATENT DUCTUS ARTERIOSUS [None]
  - PULMONARY ARTERY DILATATION [None]
  - PULMONARY VALVE STENOSIS [None]
